FAERS Safety Report 9821082 (Version 1)
Quarter: 2013Q4

REPORT INFORMATION
  Report Type: Spontaneous
  Country: US (occurrence: None)
  Receive Date: 20131028
  Receipt Date: 20131028
  Transmission Date: 20140711
  Serious: Yes (Other)
  Sender: FDA-Public Use
  Company Number: 2013US001712

PATIENT
  Age: 60 Year
  Sex: Female
  Weight: 63 kg

DRUGS (9)
  1. ICLUSIG (PONATINIB) TABLET, 15MG [Suspect]
     Indication: CHRONIC MYELOID LEUKAEMIA
     Dosage: 30 MG, QD, ORAL
     Route: 048
     Dates: start: 20130311
  2. METFORMIN (METFORMIN) [Concomitant]
  3. MELOXICAM (MELOXICAM) [Concomitant]
  4. LAXATIVE (SENNOSIDE A+B) [Concomitant]
  5. LISINOPRIL (LISINOPRIL) [Concomitant]
  6. TRAMADOL (TRAMADOL) [Concomitant]
  7. GLIMEPIRIDE (GLIMEPIRIDE) [Concomitant]
  8. STOOL SOFTENER (DOCUSATE SODIUM) [Concomitant]
  9. CARVEDILOL (CARVEDILOL) [Concomitant]

REACTIONS (2)
  - Fatigue [None]
  - Asthenia [None]
